FAERS Safety Report 7097897-6 (Version None)
Quarter: 2010Q4

REPORT INFORMATION
  Report Type: 
  Country: None (occurrence: None)
  Receive Date: 20101112
  Receipt Date: 20101105
  Transmission Date: 20110411
  Serious: Yes (Death)
  Sender: FDA-Public Use
  Company Number: FR-KINGPHARMUSA00001-K201001364

PATIENT
  Age: 75 Year
  Sex: Female

DRUGS (5)
  1. ALTACE [Suspect]
     Dosage: UNK, QD
     Route: 048
     Dates: start: 20080609, end: 20080619
  2. HYDROCHLOROTHIAZIDE [Suspect]
     Dosage: UNK, QD
     Route: 048
     Dates: start: 20080609, end: 20080619
  3. LANZUL [Suspect]
     Dosage: 30 MG, QD
     Route: 048
     Dates: start: 20080609, end: 20080619
  4. NORVASC [Suspect]
     Dosage: 5 MG, QD
     Route: 048
     Dates: start: 20080609, end: 20080619
  5. CONCOR [Suspect]
     Dosage: UNK
     Dates: start: 20080609, end: 20080619

REACTIONS (7)
  - BLISTER [None]
  - ERYTHEMA MULTIFORME [None]
  - PYREXIA [None]
  - RASH MACULAR [None]
  - SKIN EROSION [None]
  - STAPHYLOCOCCAL SEPSIS [None]
  - STEVENS-JOHNSON SYNDROME [None]
